FAERS Safety Report 25057993 (Version 1)
Quarter: 2025Q1

REPORT INFORMATION
  Report Type: Spontaneous
  Country: IE (occurrence: IE)
  Receive Date: 20250310
  Receipt Date: 20250310
  Transmission Date: 20250409
  Serious: Yes (Hospitalization, Other)
  Sender: STRIDES
  Company Number: IE-STRIDES ARCOLAB LIMITED-2025SP002944

PATIENT
  Age: 3 Decade
  Sex: Female

DRUGS (8)
  1. HYDROCORTISONE [Suspect]
     Active Substance: HYDROCORTISONE
     Indication: Cardiac dysfunction
     Route: 065
  2. CHLORPHENIRAMINE MALEATE [Suspect]
     Active Substance: CHLORPHENIRAMINE MALEATE
     Indication: Cardiac dysfunction
     Route: 065
  3. EPINEPHRINE [Suspect]
     Active Substance: EPINEPHRINE
     Indication: Cardiac dysfunction
     Route: 065
  4. EPINEPHRINE [Suspect]
     Active Substance: EPINEPHRINE
     Route: 065
  5. IBUPROFEN [Suspect]
     Active Substance: IBUPROFEN
     Indication: Analgesic therapy
     Route: 065
  6. ACETAMINOPHEN [Suspect]
     Active Substance: ACETAMINOPHEN
     Indication: Analgesic therapy
     Route: 065
  7. NOREPINEPHRINE BITARTRATE [Suspect]
     Active Substance: NOREPINEPHRINE BITARTRATE
     Indication: Anaphylactic reaction
     Route: 065
  8. CABERGOLINE [Suspect]
     Active Substance: CABERGOLINE
     Indication: Lactation insufficiency
     Route: 065

REACTIONS (4)
  - Cardiac dysfunction [Recovered/Resolved]
  - Condition aggravated [Recovered/Resolved]
  - Drug ineffective for unapproved indication [Unknown]
  - Maternal exposure during breast feeding [Unknown]
